FAERS Safety Report 8788588 (Version 2)
Quarter: 2012Q4

REPORT INFORMATION
  Report Type: 
  Country: US (occurrence: US)
  Receive Date: 20120914
  Receipt Date: 20121023
  Transmission Date: 20130627
  Serious: No
  Sender: FDA-Public Use
  Company Number: US-VERTEX PHARMACEUTICAL INC.-AE-2012-012022

PATIENT
  Sex: Female
  Weight: 80 kg

DRUGS (6)
  1. VX-950 [Suspect]
     Indication: HEPATITIS C
     Dosage: 750 mg, tid
     Route: 048
     Dates: start: 2012
  2. RIBASPHERE [Concomitant]
     Indication: HEPATITIS C
     Dosage: 1000 mg, qd
     Route: 048
     Dates: start: 2012
  3. PEGASYS [Concomitant]
     Indication: HEPATITIS C
     Dosage: 180 ?g, UNK
     Route: 058
     Dates: start: 2012
  4. PREDNISONE [Concomitant]
     Dosage: 5 mg, qd
     Route: 048
  5. ATENOLOL [Concomitant]
     Dosage: 25 mg, qd
     Route: 048
  6. PAROXETINE HCL [Concomitant]
     Dosage: 10 mg, qd
     Route: 048

REACTIONS (6)
  - Sinusitis [Unknown]
  - White blood cell count decreased [Unknown]
  - Alopecia [Unknown]
  - Red blood cell count decreased [Unknown]
  - Dysgeusia [Unknown]
  - Haemoglobin decreased [Unknown]
